FAERS Safety Report 5499037-3 (Version None)
Quarter: 2007Q4

REPORT INFORMATION
  Report Type: 
  Country: None (occurrence: None)
  Receive Date: 20071026
  Receipt Date: 20070905
  Transmission Date: 20080405
  Serious: No
  Sender: FDA-Public Use
  Company Number: A0652164A

PATIENT
  Age: 68 Year
  Sex: Female

DRUGS (11)
  1. ADVAIR DISKUS 100/50 [Suspect]
     Indication: DRUG USE FOR UNKNOWN INDICATION
     Dosage: 1PUFF TWICE PER DAY
     Route: 055
     Dates: start: 20060301
  2. ADVAIR DISKUS 100/50 [Suspect]
     Dosage: 1SPR UNKNOWN
     Route: 055
  3. HYDROCODONE [Concomitant]
  4. IBUPROFEN [Concomitant]
  5. METHYLPREDNISOLONE [Concomitant]
  6. TOPROL-XL [Concomitant]
  7. NEXIUM [Concomitant]
  8. CELEXA [Concomitant]
  9. CRESTOR [Concomitant]
  10. FLONASE [Concomitant]
  11. BUPROPION HCL [Concomitant]

REACTIONS (2)
  - DRUG INEFFECTIVE [None]
  - PHARMACEUTICAL PRODUCT COMPLAINT [None]
